FAERS Safety Report 19676454 (Version 1)
Quarter: 2021Q3

REPORT INFORMATION
  Report Type: Report from Study
  Country: US (occurrence: US)
  Receive Date: 20210809
  Receipt Date: 20210809
  Transmission Date: 20211014
  Serious: Yes (Hospitalization)
  Sender: FDA-Public Use
  Company Number: US-ROCHE-2883639

PATIENT
  Age: 29 Year
  Sex: Female

DRUGS (3)
  1. RITUXIMAB. [Suspect]
     Active Substance: RITUXIMAB
     Indication: HAIRY CELL LEUKAEMIA
     Dosage: BEGIN DAY 1 IN HALF OF RANDOMIZED PATIENTS AND IN ALL HCLV PATIENTS, AND THEN AGAIN IN ALL PATIENTS
     Route: 041
  2. FILGRASTIM [Concomitant]
     Active Substance: FILGRASTIM
  3. CLADRIBINE. [Suspect]
     Active Substance: CLADRIBINE
     Indication: HAIRY CELL LEUKAEMIA
     Route: 042
     Dates: start: 20210726, end: 20210730

REACTIONS (5)
  - Headache [Unknown]
  - Decreased appetite [Unknown]
  - Pancytopenia [Unknown]
  - Tachycardia [Unknown]
  - Pyrexia [Unknown]

NARRATIVE: CASE EVENT DATE: 20210801
